FAERS Safety Report 6520273-9 (Version None)
Quarter: 2009Q4

REPORT INFORMATION
  Report Type: 
  Country: None (occurrence: None)
  Receive Date: 20091229
  Receipt Date: 20091214
  Transmission Date: 20100525
  Serious: Yes (Hospitalization)
  Sender: FDA-Public Use
  Company Number: US-PFIZER INC-2009310146

PATIENT
  Sex: Male
  Weight: 77.098 kg

DRUGS (10)
  1. TIKOSYN [Suspect]
     Indication: ATRIAL FIBRILLATION
     Dosage: 125 UG, 2X/DAY
     Dates: start: 20091204
  2. PROTONIX [Concomitant]
     Dosage: 40 MG, UNK
  3. FINASTERIDE [Concomitant]
     Dosage: 5 MG, UNK
  4. ALLOPURINOL [Concomitant]
     Dosage: 300 MG, UNK
  5. METOPROLOL [Concomitant]
     Dosage: 12.5 MG, 2X/DAY
  6. WARFARIN [Concomitant]
     Dosage: 6 MG, UNK
  7. SIMVASTATIN [Concomitant]
     Dosage: UNK
  8. ACETYLSALICYLIC ACID [Concomitant]
     Dosage: UNK
  9. PULMICORT [Concomitant]
     Dosage: UNK
  10. VITAMINS [Concomitant]
     Dosage: UNK

REACTIONS (5)
  - EPISTAXIS [None]
  - HAEMOGLOBIN DECREASED [None]
  - HAEMORRHAGE [None]
  - PRURITUS [None]
  - SCRATCH [None]
